FAERS Safety Report 16202727 (Version 1)
Quarter: 2019Q2

REPORT INFORMATION
  Report Type: Spontaneous
  Country: US (occurrence: US)
  Receive Date: 20190313
  Receipt Date: 20190313
  Transmission Date: 20190711
  Serious: No
  Sender: FDA-Public Use
  Company Number: None

PATIENT
  Age: 46 Year
  Sex: Male
  Weight: 79.38 kg

DRUGS (1)
  1. OCREVUS [Suspect]
     Active Substance: OCRELIZUMAB
     Indication: MULTIPLE SCLEROSIS
     Dosage: ?          OTHER FREQUENCY:6 MONTHS ;?
     Route: 042
     Dates: start: 201706

REACTIONS (2)
  - Pulmonary embolism [None]
  - Metastatic renal cell carcinoma [None]

NARRATIVE: CASE EVENT DATE: 20190224
